FAERS Safety Report 18712417 (Version 4)
Quarter: 2021Q2

REPORT INFORMATION
  Report Type: Spontaneous
  Country: IN (occurrence: IN)
  Receive Date: 20210107
  Receipt Date: 20210611
  Transmission Date: 20210717
  Serious: Yes (Other)
  Sender: FDA-Public Use
  Company Number: IN-PFIZER INC-2020160343

PATIENT
  Age: 56 Year
  Sex: Male

DRUGS (4)
  1. SHELCAL [CALCIUM;COLECALCIFEROL] [Concomitant]
     Active Substance: CALCIUM\CHOLECALCIFEROL
     Dosage: 500 MG, 1X/DAY
     Dates: start: 20201230
  2. MOXIFLOX [Concomitant]
     Active Substance: MOXIFLOXACIN
     Dosage: UNK, 2X/DAY
     Dates: start: 20201230
  3. SUTENT [Suspect]
     Active Substance: SUNITINIB MALATE
     Dosage: 50 MG, CYCLIC (2 WEEKS ON AND 2 WEEK OFF)
  4. SUTENT [Suspect]
     Active Substance: SUNITINIB MALATE
     Indication: METASTATIC RENAL CELL CARCINOMA
     Dosage: 50 MG, CYCLIC (ONCE A DAY, 2 WEEKS ON AND 1 WEEK OFF)
     Route: 048
     Dates: start: 20200324

REACTIONS (9)
  - Transitional cell carcinoma [Unknown]
  - Second primary malignancy [Unknown]
  - Blood creatinine increased [Unknown]
  - Asthenia [Unknown]
  - Rash [Unknown]
  - Fatigue [Unknown]
  - Blood thyroid stimulating hormone increased [Unknown]
  - Blood bilirubin increased [Unknown]
  - Platelet count decreased [Unknown]

NARRATIVE: CASE EVENT DATE: 20201013
